FAERS Safety Report 15041732 (Version 9)
Quarter: 2020Q3

REPORT INFORMATION
  Report Type: Other
  Country: US (occurrence: US)
  Receive Date: 20180621
  Receipt Date: 20200819
  Transmission Date: 20201102
  Serious: Yes (Hospitalization, Other)
  Sender: FDA-Public Use
  Company Number: US-ROCHE-2141593

PATIENT
  Age: 35 Year
  Sex: Female
  Weight: 73.55 kg

DRUGS (21)
  1. AMPYRA [Concomitant]
     Active Substance: DALFAMPRIDINE
  2. KETOROLAC TROMETHAMINE. [Concomitant]
     Active Substance: KETOROLAC TROMETHAMINE
  3. GABAPENTIN. [Concomitant]
     Active Substance: GABAPENTIN
  4. MAGNESIUM OXIDE. [Concomitant]
     Active Substance: MAGNESIUM OXIDE
  5. AMANTADINE. [Concomitant]
     Active Substance: AMANTADINE HYDROCHLORIDE
  6. HYDROCORTISONE ACETATE. [Concomitant]
     Active Substance: HYDROCORTISONE ACETATE
  7. ESTRADIOL. [Concomitant]
     Active Substance: ESTRADIOL
  8. CHOLECALCIFEROL [Concomitant]
     Active Substance: CHOLECALCIFEROL
  9. SUMATRIPTAN. [Concomitant]
     Active Substance: SUMATRIPTAN
  10. LACTOBACILLUS ACIDOPHILUS [Concomitant]
     Active Substance: LACTOBACILLUS ACIDOPHILUS
  11. PROMETHAZINE [Concomitant]
     Active Substance: PROMETHAZINE HYDROCHLORIDE
  12. OCREVUS [Suspect]
     Active Substance: OCRELIZUMAB
     Indication: RELAPSING-REMITTING MULTIPLE SCLEROSIS
     Route: 042
     Dates: start: 20171101
  13. RESTASIS [Concomitant]
     Active Substance: CYCLOSPORINE
  14. ZINC SULFATE. [Concomitant]
     Active Substance: ZINC SULFATE
  15. FLUTICASONE. [Concomitant]
     Active Substance: FLUTICASONE
  16. TRILEPTAL [Concomitant]
     Active Substance: OXCARBAZEPINE
  17. MODAFINIL. [Concomitant]
     Active Substance: MODAFINIL
  18. ZOLPIDEM [Concomitant]
     Active Substance: ZOLPIDEM TARTRATE
  19. BACLOFEN. [Concomitant]
     Active Substance: BACLOFEN
  20. DOK [Concomitant]
     Active Substance: DOCUSATE SODIUM
  21. CALCIUM CARBONATE. [Concomitant]
     Active Substance: CALCIUM CARBONATE

REACTIONS (23)
  - Adnexal torsion [Recovered/Resolved]
  - Lip blister [Unknown]
  - Photosensitivity reaction [Unknown]
  - Eye ulcer [Unknown]
  - Pain in jaw [Unknown]
  - Mood swings [Unknown]
  - Ovarian cyst [Not Recovered/Not Resolved]
  - Nausea [Unknown]
  - Anxiety [Unknown]
  - Sluggishness [Not Recovered/Not Resolved]
  - Tongue blistering [Unknown]
  - Multiple sclerosis relapse [Recovered/Resolved]
  - Blood pressure increased [Recovered/Resolved]
  - Urinary tract infection [Unknown]
  - Sepsis [Unknown]
  - Endometriosis [Not Recovered/Not Resolved]
  - Upper respiratory tract infection [Recovered/Resolved]
  - Ovarian cyst ruptured [Unknown]
  - Headache [Unknown]
  - Pain [Not Recovered/Not Resolved]
  - Pollakiuria [Unknown]
  - Aphthous ulcer [Unknown]
  - Insomnia [Unknown]

NARRATIVE: CASE EVENT DATE: 20180322
